FAERS Safety Report 4386428-7 (Version None)
Quarter: 2004Q2

REPORT INFORMATION
  Report Type: 
  Country: None (occurrence: None)
  Receive Date: 20040623
  Receipt Date: 20040610
  Transmission Date: 20050107
  Serious: Yes (Hospitalization)
  Sender: FDA-Public Use
  Company Number: US-JNJFOC-20040603073

PATIENT
  Age: 64 Year
  Sex: Male

DRUGS (4)
  1. TYLENOL W/ CODEINE NO. 3 [Suspect]
     Indication: BACK PAIN
     Dosage: ORAL
     Route: 048
     Dates: start: 20040507, end: 20040520
  2. SUMANIROLE (ALL OTHER THERAPEUTIC PRODUCTS) [Suspect]
     Indication: PARKINSON'S DISEASE
     Dosage: SEE IMAGE
     Route: 048
     Dates: start: 20040112, end: 20040520
  3. DARVOCET-N 100 [Suspect]
     Indication: BACK PAIN
     Dosage: ORAL
     Route: 048
     Dates: start: 20040501
  4. AMANTADINE (AMANTADINE) [Suspect]
     Dates: end: 20040521

REACTIONS (4)
  - BACK PAIN [None]
  - ENCEPHALOPATHY [None]
  - HALLUCINATION, VISUAL [None]
  - INSOMNIA [None]
